FAERS Safety Report 14861854 (Version 1)
Quarter: 2018Q2

REPORT INFORMATION
  Report Type: Spontaneous
  Country: FR (occurrence: FR)
  Receive Date: 20180508
  Receipt Date: 20180508
  Transmission Date: 20180711
  Serious: Yes (Hospitalization)
  Sender: FDA-Public Use
  Company Number: FR-SA-2018SA123598

PATIENT
  Age: 44 Year
  Sex: Female
  Weight: 79 kg

DRUGS (2)
  1. DOCETAXEL. [Suspect]
     Active Substance: DOCETAXEL
     Indication: OVARIAN CANCER
     Route: 041
  2. DOCETAXEL. [Suspect]
     Active Substance: DOCETAXEL
     Indication: OVARIAN CANCER
     Dosage: IN TOTAL
     Route: 041
     Dates: start: 20180213, end: 20180213

REACTIONS (4)
  - Chest pain [Recovered/Resolved]
  - Oxygen saturation decreased [Recovered/Resolved]
  - Respiratory distress [Recovered/Resolved]
  - Trismus [Recovered/Resolved]

NARRATIVE: CASE EVENT DATE: 20180213
